FAERS Safety Report 21580932 (Version 1)
Quarter: 2022Q4

REPORT INFORMATION
  Report Type: Report from Study
  Country: US (occurrence: US)
  Receive Date: 20221111
  Receipt Date: 20221111
  Transmission Date: 20230113
  Serious: No
  Sender: FDA-Public Use
  Company Number: US-ABBVIE-4195915

PATIENT
  Age: 69 Year
  Sex: Male

DRUGS (1)
  1. HUMIRA [Suspect]
     Active Substance: ADALIMUMAB
     Indication: Crohn^s disease
     Dosage: CITRATE FREE FROM STRENGTH : 40 MG
     Route: 058
     Dates: start: 202208

REACTIONS (2)
  - Urinary tract infection [Not Recovered/Not Resolved]
  - Urinary retention [Unknown]

NARRATIVE: CASE EVENT DATE: 20221019
